FAERS Safety Report 7229026-X (Version None)
Quarter: 2011Q1

REPORT INFORMATION
  Report Type: 
  Country: None (occurrence: None)
  Receive Date: 20110117
  Receipt Date: 20110111
  Transmission Date: 20110831
  Serious: Yes (Life-Threatening, Hospitalization)
  Sender: FDA-Public Use
  Company Number: JP-JNJFOC-20101201183

PATIENT
  Age: 48 Year
  Sex: Male
  Weight: 71 kg

DRUGS (10)
  1. BROMPERIDOL [Concomitant]
     Route: 065
  2. ETIZOLAM [Concomitant]
     Indication: SCHIZOPHRENIA
     Route: 048
  3. BIPERIDEN LACTATE [Concomitant]
     Indication: SCHIZOPHRENIA
     Route: 048
  4. RISPERDAL [Suspect]
     Route: 048
  5. FLUNITRAZEPAM [Concomitant]
     Indication: SCHIZOPHRENIA
     Route: 048
  6. RISPERDAL [Suspect]
     Indication: SCHIZOPHRENIA
     Route: 048
  7. LONASEN [Suspect]
     Indication: SCHIZOPHRENIA
     Route: 048
  8. HALOXAZOLAM [Concomitant]
     Route: 065
  9. LEMONAMIN [Suspect]
     Indication: SCHIZOPHRENIA
     Route: 048
  10. NEULEPTIL [Suspect]
     Indication: SCHIZOPHRENIA
     Route: 048

REACTIONS (4)
  - CONVULSION [None]
  - RHABDOMYOLYSIS [None]
  - NEUROLEPTIC MALIGNANT SYNDROME [None]
  - WATER INTOXICATION [None]
